FAERS Safety Report 13567396 (Version 1)
Quarter: 2017Q2

REPORT INFORMATION
  Report Type: Spontaneous
  Country: CA (occurrence: CA)
  Receive Date: 20170522
  Receipt Date: 20170522
  Transmission Date: 20170830
  Serious: Yes (Other)
  Sender: FDA-Public Use
  Company Number: US-BRAINTREE LABORATORIES-170281

PATIENT
  Age: 71 Year
  Sex: Female
  Weight: 49.9 kg

DRUGS (1)
  1. GOLYTELY [Suspect]
     Active Substance: POLYETHYLENE GLYCOL 3350\POTASSIUM CHLORIDE\SODIUM BICARBONATE\SODIUM CHLORIDE\SODIUM SULFATE ANHYDROUS
     Indication: COLONOSCOPY
     Dosage: 2L
     Route: 048
     Dates: start: 20170511, end: 20170511

REACTIONS (8)
  - Syncope [None]
  - Wrong technique in product usage process [None]
  - Head injury [None]
  - Anal incontinence [None]
  - Asthenia [None]
  - Nausea [None]
  - Tremor [None]
  - Vomiting [None]

NARRATIVE: CASE EVENT DATE: 20170512
